FAERS Safety Report 17396302 (Version 1)
Quarter: 2020Q1

REPORT INFORMATION
  Report Type: Spontaneous
  Country: US (occurrence: US)
  Receive Date: 20200207
  Receipt Date: 20200207
  Transmission Date: 20200409
  Serious: Yes (Hospitalization)
  Sender: FDA-Public Use
  Company Number: None

PATIENT
  Age: 55 Year
  Sex: Female
  Weight: 74.25 kg

DRUGS (17)
  1. JARDIANCE [Suspect]
     Active Substance: EMPAGLIFLOZIN
     Indication: DIABETES MELLITUS
     Dosage: ?          QUANTITY:1 TABLET(S);?
     Route: 048
     Dates: start: 20190516, end: 20200103
  2. HUMALOG [Concomitant]
     Active Substance: INSULIN LISPRO
  3. TURMERIC [Concomitant]
     Active Substance: HERBALS\TURMERIC
  4. LANTUS [Concomitant]
     Active Substance: INSULIN GLARGINE
  5. MAGNESIUM [Concomitant]
     Active Substance: MAGNESIUM
  6. FIBER [Concomitant]
     Active Substance: PSYLLIUM HUSK
  7. FLAXSEED [Concomitant]
     Active Substance: FLAX SEED
  8. LAMICTAL [Concomitant]
     Active Substance: LAMOTRIGINE
  9. COQ10 [Concomitant]
     Active Substance: UBIDECARENONE
  10. BENAZEPRIL [Concomitant]
     Active Substance: BENAZEPRIL HYDROCHLORIDE
  11. DOCUSATE [Concomitant]
     Active Substance: DOCUSATE
  12. ASA 81 [Concomitant]
     Active Substance: ASPIRIN
  13. LIPITOR [Concomitant]
     Active Substance: ATORVASTATIN CALCIUM
  14. VIT D [Concomitant]
     Active Substance: VITAMIN D NOS
  15. TRAZODONE [Concomitant]
     Active Substance: TRAZODONE HYDROCHLORIDE
  16. METFORMIN [Concomitant]
     Active Substance: METFORMIN HYDROCHLORIDE
  17. MULTIVITAMIN [Concomitant]
     Active Substance: VITAMINS

REACTIONS (12)
  - Euglycaemic diabetic ketoacidosis [None]
  - Palpitations [None]
  - Influenza like illness [None]
  - Body temperature decreased [None]
  - Blood glucose increased [None]
  - Fatigue [None]
  - Fall [None]
  - Dizziness [None]
  - Drug monitoring procedure not performed [None]
  - Product dose omission [None]
  - Colour blindness [None]
  - Loss of consciousness [None]

NARRATIVE: CASE EVENT DATE: 20200107
